FAERS Safety Report 17175295 (Version 1)
Quarter: 2019Q4

REPORT INFORMATION
  Report Type: Spontaneous
  Country: US (occurrence: US)
  Receive Date: 20191219
  Receipt Date: 20191219
  Transmission Date: 20200122
  Serious: Yes (Hospitalization)
  Sender: FDA-Public Use
  Company Number: US-UCBSA-116482

PATIENT
  Age: 52 Year
  Sex: Female
  Weight: 67.27 kg

DRUGS (7)
  1. METHOTREXATE. [Concomitant]
     Active Substance: METHOTREXATE
     Indication: RHEUMATOID ARTHRITIS
     Dosage: 2.5 5 TABLETS ONCE A WEEK
  2. PREDNISONE. [Concomitant]
     Active Substance: PREDNISONE
     Indication: RHEUMATOID ARTHRITIS
     Dosage: 5 MG
  3. METHOTREXATE. [Concomitant]
     Active Substance: METHOTREXATE
     Dosage: 7 TABLETS WEEKLY
     Dates: start: 201405
  4. GLUCOSAMINE CON CHONDROITIN [Concomitant]
     Dosage: FOR 8 YEARS
  5. CIMZIA [Suspect]
     Active Substance: CERTOLIZUMAB PEGOL
     Dosage: DOSE UNKNOWN
     Route: 058
  6. CIMZIA [Suspect]
     Active Substance: CERTOLIZUMAB PEGOL
     Indication: RHEUMATOID ARTHRITIS
     Dosage: FROM 1 OR 2 YEARS
     Route: 058
  7. DYAZIDE [Concomitant]
     Active Substance: HYDROCHLOROTHIAZIDE\TRIAMTERENE
     Indication: HYPERTENSION

REACTIONS (4)
  - Arthralgia [Unknown]
  - Back pain [Recovering/Resolving]
  - Fatigue [Unknown]
  - Incision site erythema [Recovering/Resolving]

NARRATIVE: CASE EVENT DATE: 201312
